FAERS Safety Report 11237822 (Version 3)
Quarter: 2015Q4

REPORT INFORMATION
  Report Type: Spontaneous
  Country: US (occurrence: US)
  Receive Date: 20150703
  Receipt Date: 20151001
  Transmission Date: 20160304
  Serious: Yes (Life-Threatening, Hospitalization, Other)
  Sender: FDA-Public Use
  Company Number: US-009507513-1506USA013888

PATIENT
  Age: 34 Year
  Sex: Female
  Weight: 71.66 kg

DRUGS (1)
  1. NUVARING [Suspect]
     Active Substance: ETHINYL ESTRADIOL\ETONOGESTREL
     Indication: CONTRACEPTION
     Dosage: ONE RING/ 3WEEKS/ONE WEEK FREE
     Route: 067
     Dates: start: 201412, end: 20150615

REACTIONS (8)
  - Chest pain [Recovering/Resolving]
  - Muscle fatigue [Recovering/Resolving]
  - Pulmonary embolism [Recovering/Resolving]
  - Neck pain [Recovering/Resolving]
  - Breast cancer [Unknown]
  - Tachycardia [Recovering/Resolving]
  - Fatigue [Recovering/Resolving]
  - Chest discomfort [Recovering/Resolving]

NARRATIVE: CASE EVENT DATE: 2015
